FAERS Safety Report 4553528-8 (Version None)
Quarter: 2004Q4

REPORT INFORMATION
  Report Type: 
  Country: None (occurrence: None)
  Receive Date: 20041227
  Receipt Date: 20041116
  Transmission Date: 20050328
  Serious: No
  Sender: FDA-Public Use
  Company Number: 04P-163-0278456-00

PATIENT
  Age: 47 Year
  Sex: Male
  Weight: 81.6475 kg

DRUGS (9)
  1. HUMIRA [Suspect]
     Indication: RHEUMATOID ARTHRITIS
     Dosage: 40 MG, 1 IN 2 WK, SUBCUTANEOUS
     Route: 058
     Dates: start: 20040901
  2. PHENOBARBITAL [Concomitant]
  3. MIRTAZAPINE [Concomitant]
  4. LORAZEPAM [Concomitant]
  5. OXYCOCET [Concomitant]
  6. MORPHINE [Concomitant]
  7. PROCHLORPERAZINE EDISYLATE [Concomitant]
  8. PHENERGAN [Concomitant]
  9. RISEDRONATE SODIUM [Concomitant]

REACTIONS (10)
  - ABDOMINAL PAIN [None]
  - COLD SWEAT [None]
  - CONDITION AGGRAVATED [None]
  - HEADACHE [None]
  - INFLUENZA LIKE ILLNESS [None]
  - NAUSEA [None]
  - OEDEMA PERIPHERAL [None]
  - PAIN IN EXTREMITY [None]
  - STRESS SYMPTOMS [None]
  - VOMITING [None]
